FAERS Safety Report 21236133 (Version 2)
Quarter: 2022Q4

REPORT INFORMATION
  Report Type: Spontaneous
  Country: PT (occurrence: PT)
  Receive Date: 20220822
  Receipt Date: 20221020
  Transmission Date: 20230113
  Serious: Yes (Other)
  Sender: FDA-Public Use
  Company Number: PT-CELGENE-130-20785-09010365

PATIENT
  Age: 40 Year
  Sex: Female

DRUGS (7)
  1. THALIDOMIDE [Suspect]
     Active Substance: THALIDOMIDE
     Indication: Behcet^s syndrome
     Route: 048
     Dates: start: 20081101, end: 20081106
  2. THALIDOMIDE [Suspect]
     Active Substance: THALIDOMIDE
     Dosage: START DATE:1995/1996
     Route: 048
     Dates: end: 2008
  3. ETHINYL ESTRADIOL\GESTODENE [Suspect]
     Active Substance: ETHINYL ESTRADIOL\GESTODENE
     Indication: Contraception
     Dosage: 0.03MG ETINILESTRADIOL + 0.075MG GESTODEN
     Route: 048
     Dates: start: 200809
  4. MEDROXYPROGESTERONE [Concomitant]
     Active Substance: MEDROXYPROGESTERONE
     Indication: Hormone replacement therapy
     Route: 065
     Dates: start: 2007
  5. MEDROXYPROGESTERONE [Concomitant]
     Active Substance: MEDROXYPROGESTERONE
     Indication: Premature menopause
  6. ESTRADIOL VALERATE [Concomitant]
     Active Substance: ESTRADIOL VALERATE
     Indication: Premature menopause
     Route: 065
  7. ESTRADIOL VALERATE [Concomitant]
     Active Substance: ESTRADIOL VALERATE
     Indication: Hormone replacement therapy

REACTIONS (2)
  - Maternal exposure during pregnancy [Unknown]
  - Pregnancy on oral contraceptive [Unknown]
